FAERS Safety Report 13248968 (Version 1)
Quarter: 2017Q1

REPORT INFORMATION
  Report Type: Spontaneous
  Country: US (occurrence: US)
  Receive Date: 20170218
  Receipt Date: 20170218
  Transmission Date: 20170428
  Serious: No
  Sender: FDA-Public Use
  Company Number: US-ALLERGAN-1650841US

PATIENT
  Age: 50 Year
  Sex: Female
  Weight: 57.14 kg

DRUGS (2)
  1. RESTASIS [Suspect]
     Active Substance: CYCLOSPORINE
     Indication: DRY EYE
     Dosage: QD
     Route: 047
     Dates: start: 201603
  2. ARTIFICIAL TEARS [Concomitant]
     Active Substance: GLYCERIN\HYPROMELLOSES\POLYETHYLENE GLYCOL 400
     Indication: DRY EYE
     Dosage: UNK

REACTIONS (1)
  - Eye irritation [Recovered/Resolved]

NARRATIVE: CASE EVENT DATE: 201603
